FAERS Safety Report 8248571-1 (Version None)
Quarter: 2012Q1

REPORT INFORMATION
  Report Type: 
  Country: None (occurrence: None)
  Receive Date: 20120330
  Receipt Date: 20120321
  Transmission Date: 20120608
  Serious: Yes (Other)
  Sender: FDA-Public Use
  Company Number: US-ASTRAZENECA-2011SE46690

PATIENT
  Age: 62 Year
  Sex: Female

DRUGS (4)
  1. CRESTOR [Suspect]
     Route: 048
  2. NEXIUM [Suspect]
     Route: 048
  3. SEROQUEL [Suspect]
     Indication: SLEEP DISORDER
     Dosage: 25 MG ONE TO THREE TABLETS DAILY
     Route: 048
  4. SEROQUEL [Suspect]
     Route: 048

REACTIONS (18)
  - CHOKING [None]
  - CONFUSIONAL STATE [None]
  - OFF LABEL USE [None]
  - APPENDICITIS PERFORATED [None]
  - COGNITIVE DISORDER [None]
  - DYSPEPSIA [None]
  - MALAISE [None]
  - BACK PAIN [None]
  - PAIN IN EXTREMITY [None]
  - DRUG DOSE OMISSION [None]
  - DEMENTIA [None]
  - DYSPNOEA [None]
  - ROAD TRAFFIC ACCIDENT [None]
  - DISTURBANCE IN ATTENTION [None]
  - CHEST PAIN [None]
  - DEPRESSION [None]
  - MEMORY IMPAIRMENT [None]
  - ANGINA PECTORIS [None]
